FAERS Safety Report 16594998 (Version 1)
Quarter: 2019Q3

REPORT INFORMATION
  Report Type: Spontaneous
  Country: US (occurrence: US)
  Receive Date: 20190718
  Receipt Date: 20190718
  Transmission Date: 20191004
  Serious: No
  Sender: FDA-Public Use
  Company Number: US-ROCHE-2280702

PATIENT
  Age: 51 Year
  Sex: Male
  Weight: 84.4 kg

DRUGS (10)
  1. COBICISTAT [Concomitant]
     Active Substance: COBICISTAT
     Dosage: 800-150 MG
     Route: 048
  2. HEMLIBRA [Suspect]
     Active Substance: EMICIZUMAB-KXWH
     Indication: FACTOR VIII DEFICIENCY
     Dosage: MAINTIANENCE DOSE?STOPPED ON: 05/MAR/2019
     Route: 058
     Dates: start: 20190120
  3. ADYNOVATE [Concomitant]
     Active Substance: ANTIHEMOPHILIC FACTOR, HUMAN RECOMBINANT
     Indication: HAEMORRHAGE
     Dosage: 3236 UNITS
     Route: 042
  4. DARUNAVIR [Concomitant]
     Active Substance: DARUNAVIR
     Dosage: 800-150 MG
     Route: 048
  5. TENOFOVIR [Concomitant]
     Active Substance: TENOFOVIR
     Dosage: AF 200-25 MG
     Route: 048
  6. EMTRICITABINE [Concomitant]
     Active Substance: EMTRICITABINE
     Dosage: AF 200-25 MG
     Route: 048
  7. ITRACONAZOLE. [Concomitant]
     Active Substance: ITRACONAZOLE
     Route: 048
  8. DOLUTEGRAVIR [Concomitant]
     Active Substance: DOLUTEGRAVIR
     Route: 048
  9. LISINOPRIL. [Concomitant]
     Active Substance: LISINOPRIL
     Route: 048
  10. BACTRIM DS [Concomitant]
     Active Substance: SULFAMETHOXAZOLE\TRIMETHOPRIM
     Dosage: 800-160 MG
     Route: 048

REACTIONS (1)
  - Arthralgia [Recovering/Resolving]

NARRATIVE: CASE EVENT DATE: 20190223
